FAERS Safety Report 4470532-9 (Version None)
Quarter: 2004Q4

REPORT INFORMATION
  Report Type: 
  Country: None (occurrence: None)
  Receive Date: 20041001
  Receipt Date: 20040921
  Transmission Date: 20050328
  Serious: Yes (Death)
  Sender: FDA-Public Use
  Company Number: CA-2004-032325

PATIENT
  Age: 41 Year
  Sex: Female

DRUGS (1)
  1. BETASERON [Suspect]
     Indication: MULTIPLE SCLEROSIS
     Dosage: 8  MIU, EVERY 2 D, SUBCUTANEOUS
     Route: 058
     Dates: start: 19970117, end: 20040908

REACTIONS (2)
  - COMA [None]
  - MIGRAINE [None]
